FAERS Safety Report 5240483-0 (Version None)
Quarter: 2007Q1

REPORT INFORMATION
  Report Type: 
  Country: None (occurrence: None)
  Receive Date: 20070219
  Receipt Date: 20070214
  Transmission Date: 20070707
  Serious: Yes (Hospitalization)
  Sender: FDA-Public Use
  Company Number: US-GLAXOSMITHKLINE-A0639555A

PATIENT
  Age: 3 Year
  Sex: Male

DRUGS (2)
  1. AMOXICILLIN [Suspect]
     Indication: RASH
     Route: 048
     Dates: start: 20070101, end: 20070202
  2. VITAMINS [Concomitant]

REACTIONS (7)
  - FEELING HOT [None]
  - HYPERSENSITIVITY [None]
  - PAIN IN EXTREMITY [None]
  - RASH [None]
  - RASH PRURITIC [None]
  - URTICARIA [None]
  - VIRAL INFECTION [None]
